FAERS Safety Report 5603192-1 (Version None)
Quarter: 2008Q1

REPORT INFORMATION
  Report Type: 
  Country: None (occurrence: None)
  Receive Date: 20080123
  Receipt Date: 20080114
  Transmission Date: 20080703
  Serious: Yes (Other)
  Sender: FDA-Public Use
  Company Number: 2008001334

PATIENT
  Age: 42 Year
  Weight: 55.8 kg

DRUGS (1)
  1. BENADRYL ALLERGY QUICK DISSOLVE STRIPS (DIPHENHYDRAMINE) [Suspect]
     Indication: HYPERSENSITIVITY
     Dosage: 1 STRIP ONCE, ORAL
     Route: 048
     Dates: start: 20080114, end: 20080114

REACTIONS (1)
  - THROAT TIGHTNESS [None]
